FAERS Safety Report 5629709-9 (Version None)
Quarter: 2008Q1

REPORT INFORMATION
  Report Type: 
  Country: None (occurrence: None)
  Receive Date: 20080214
  Receipt Date: 20080207
  Transmission Date: 20080703
  Serious: Yes (Hospitalization)
  Sender: FDA-Public Use
  Company Number: 2008RL000048

PATIENT
  Age: 86 Year
  Sex: Female

DRUGS (3)
  1. DYNACIRC [Suspect]
     Indication: BLOOD PRESSURE
     Dosage: 5 MG;QD;PO
     Route: 048
     Dates: start: 19970101
  2. THYROID TAB [Concomitant]
  3. ATENOLOL [Concomitant]

REACTIONS (4)
  - ARTHRALGIA [None]
  - DRUG DOSE OMISSION [None]
  - KNEE ARTHROPLASTY [None]
  - SYNCOPE [None]
